FAERS Safety Report 5471763-1 (Version None)
Quarter: 2007Q3

REPORT INFORMATION
  Report Type: 
  Country: None (occurrence: None)
  Receive Date: 20070928
  Receipt Date: 20070511
  Transmission Date: 20080115
  Serious: No
  Sender: FDA-Public Use
  Company Number: US-BRISTOL-MYERS SQUIBB COMPANY-13776539

PATIENT
  Age: 58 Year
  Sex: Female

DRUGS (3)
  1. DEFINITY [Suspect]
     Dates: start: 20070510, end: 20070510
  2. PATANOL [Concomitant]
  3. KEFLEX [Concomitant]

REACTIONS (2)
  - BONE PAIN [None]
  - DIARRHOEA [None]
